FAERS Safety Report 25952727 (Version 1)
Quarter: 2025Q4

REPORT INFORMATION
  Report Type: Spontaneous
  Country: PE (occurrence: PE)
  Receive Date: 20251023
  Receipt Date: 20251023
  Transmission Date: 20260118
  Serious: Yes (Death, Other)
  Sender: AMGEN
  Company Number: PE-AMGEN-PERSP2025208350

PATIENT

DRUGS (2)
  1. BEVACIZUMAB [Suspect]
     Active Substance: BEVACIZUMAB
     Indication: Hepatocellular carcinoma
     Dosage: UNK
     Route: 065
  2. ATEZOLIZUMAB [Suspect]
     Active Substance: ATEZOLIZUMAB
     Indication: Hepatocellular carcinoma
     Route: 065

REACTIONS (7)
  - Death [Fatal]
  - Pneumonitis [Unknown]
  - Nephrotic syndrome [Unknown]
  - Pulmonary embolism [Unknown]
  - Metastasis [Unknown]
  - Drug effective for unapproved indication [Unknown]
  - Off label use [Unknown]
